FAERS Safety Report 8621872-0 (Version None)
Quarter: 2012Q3

REPORT INFORMATION
  Report Type: 
  Country: None (occurrence: None)
  Receive Date: 20120822
  Receipt Date: 20120822
  Transmission Date: 20120928
  Serious: Yes (Other)
  Sender: FDA-Public Use
  Company Number: None

PATIENT
  Sex: Female

DRUGS (1)
  1. SODIUM FERRIC GLUCONATE COMPLEX [Suspect]
     Dosage: 250MG ONE TIME IV
     Route: 042
     Dates: start: 20120813, end: 20120813

REACTIONS (4)
  - TACHYCARDIA [None]
  - URTICARIA [None]
  - OEDEMA PERIPHERAL [None]
  - HYPERTENSION [None]
